FAERS Safety Report 5522171-6 (Version None)
Quarter: 2007Q4

REPORT INFORMATION
  Report Type: 
  Country: None (occurrence: None)
  Receive Date: 20071120
  Receipt Date: 20071115
  Transmission Date: 20080405
  Serious: Yes (Hospitalization)
  Sender: FDA-Public Use
  Company Number: FR-GENENTECH-251402

PATIENT
  Sex: Female

DRUGS (3)
  1. RAPTIVA [Suspect]
     Indication: PSORIASIS
     Dosage: 0.9 ML, 1/WEEK
     Route: 058
     Dates: start: 20060501, end: 20071010
  2. DIOSMIN [Concomitant]
     Indication: VENOUS STASIS
     Dosage: UNK, QD
     Route: 048
     Dates: start: 20040101
  3. ETONOGESTREL [Concomitant]
     Indication: CONTRACEPTION
     Route: 023
     Dates: start: 20061101

REACTIONS (3)
  - HYPERTRIGLYCERIDAEMIA [None]
  - LUNG DISORDER [None]
  - TRANSAMINASES INCREASED [None]
